FAERS Safety Report 16428336 (Version 1)
Quarter: 2019Q2

REPORT INFORMATION
  Report Type: Spontaneous
  Country: US (occurrence: US)
  Receive Date: 20190506
  Receipt Date: 20190506
  Transmission Date: 20190711
  Serious: No
  Sender: FDA-Public Use
  Company Number: None

PATIENT
  Age: 84 Year
  Sex: Male

DRUGS (1)
  1. LIRAGLUTIDE [Suspect]
     Active Substance: LIRAGLUTIDE
     Dates: start: 20190215, end: 20190419

REACTIONS (3)
  - Photopsia [None]
  - Vision blurred [None]
  - Eye irritation [None]

NARRATIVE: CASE EVENT DATE: 20190419
